FAERS Safety Report 20108213 (Version 1)
Quarter: 2021Q4

REPORT INFORMATION
  Report Type: Spontaneous
  Country: US (occurrence: US)
  Receive Date: 20211124
  Receipt Date: 20211124
  Transmission Date: 20220303
  Serious: No
  Sender: FDA-Public Use
  Company Number: US-KERYX BIOPHARMACEUTICALS INC.-2021US008234

PATIENT
  Sex: Male

DRUGS (9)
  1. AURYXIA [Suspect]
     Active Substance: TETRAFERRIC TRICITRATE DECAHYDRATE
     Indication: Hyperphosphataemia
     Dosage: 2 GRAM (TABLETS), TID WITH MEALS
     Route: 048
  2. AURYXIA [Suspect]
     Active Substance: TETRAFERRIC TRICITRATE DECAHYDRATE
     Dosage: 3 GRAM (TABLETS), TID WITH MEALS
     Route: 048
  3. LASIX                              /00032601/ [Concomitant]
  4. OMEPRAZOLE [Concomitant]
     Active Substance: OMEPRAZOLE
  5. INSULIN NPH                        /01223208/ [Concomitant]
  6. NOVOLIN NOS [Concomitant]
     Active Substance: INSULIN HUMAN
  7. ATORVASTATIN [Concomitant]
     Active Substance: ATORVASTATIN
  8. ALLOPURINOL [Concomitant]
     Active Substance: ALLOPURINOL
  9. ASPIRIN                            /00002701/ [Concomitant]

REACTIONS (1)
  - Drug ineffective [Unknown]
